FAERS Safety Report 6045002-7 (Version None)
Quarter: 2009Q1

REPORT INFORMATION
  Report Type: 
  Country: None (occurrence: None)
  Receive Date: 20090116
  Receipt Date: 20090116
  Transmission Date: 20090719
  Serious: Yes (Life-Threatening, Hospitalization)
  Sender: FDA-Public Use
  Company Number: None

PATIENT
  Sex: Female
  Weight: 77.5651 kg

DRUGS (9)
  1. SERTRALINE [Suspect]
     Indication: DEPRESSION
     Dosage: 50 MG BID PO
     Route: 048
     Dates: start: 20081121
  2. SERTRALINE [Suspect]
     Indication: SOCIAL PHOBIA
     Dosage: 50 MG BID PO
     Route: 048
     Dates: start: 20081121
  3. SERTRALINE [Suspect]
     Indication: DEPRESSION
     Dosage: 50 MG BID PO
     Route: 048
     Dates: start: 20081219
  4. SERTRALINE [Suspect]
     Indication: SOCIAL PHOBIA
     Dosage: 50 MG BID PO
     Route: 048
     Dates: start: 20081219
  5. SERTRALINE [Suspect]
     Indication: DEPRESSION
     Dosage: 50 MG BID PO
     Route: 048
     Dates: start: 20081226
  6. SERTRALINE [Suspect]
     Indication: SOCIAL PHOBIA
     Dosage: 50 MG BID PO
     Route: 048
     Dates: start: 20081226
  7. LEVOTHYROXINE [Concomitant]
  8. IC ONDANSETRON [Concomitant]
  9. PRILOSEC [Concomitant]

REACTIONS (5)
  - HEADACHE [None]
  - IMPULSIVE BEHAVIOUR [None]
  - SCHOOL REFUSAL [None]
  - SOCIAL PHOBIA [None]
  - SOMNOLENCE [None]
